FAERS Safety Report 4691479-9 (Version None)
Quarter: 2005Q2

REPORT INFORMATION
  Report Type: 
  Country: None (occurrence: None)
  Receive Date: 20050615
  Receipt Date: 20050422
  Transmission Date: 20051028
  Serious: Yes (Disabling)
  Sender: FDA-Public Use
  Company Number: GXBR2005US00795

PATIENT
  Age: 52 Year
  Sex: Male

DRUGS (1)
  1. DESIPRAMINE HCL [Suspect]
     Indication: DEPRESSION
     Dosage: ORAL
     Route: 048

REACTIONS (1)
  - ERECTILE DYSFUNCTION [None]
